FAERS Safety Report 4548886-4 (Version None)
Quarter: 2004Q4

REPORT INFORMATION
  Report Type: 
  Country: None (occurrence: None)
  Receive Date: 20041227
  Receipt Date: 20041118
  Transmission Date: 20050328
  Serious: No
  Sender: FDA-Public Use
  Company Number: 04P-163-0281440

PATIENT
  Age: 47 Year
  Sex: Female
  Weight: 55.7924 kg

DRUGS (6)
  1. HUMIRA [Suspect]
     Indication: RHEUMATOID ARTHRITIS
     Dosage: 40 MG, 1 IN 2 WK, SUBCUTANEOUS
     Route: 058
     Dates: start: 20040201, end: 20041103
  2. CELECOXIB [Concomitant]
  3. LANSOPRAZOLE [Concomitant]
  4. BIRTH CONTROL [Concomitant]
  5. CLORAZEPATE DIPOTASSIUM [Concomitant]
  6. CALCIUM GLUCONATE [Concomitant]

REACTIONS (2)
  - FURUNCLE [None]
  - ROSACEA [None]
